FAERS Safety Report 20112531 (Version 1)
Quarter: 2021Q4

REPORT INFORMATION
  Report Type: Other
  Country: BD (occurrence: BD)
  Receive Date: 20211125
  Receipt Date: 20211125
  Transmission Date: 20220304
  Serious: Yes (Other)
  Sender: FDA-Public Use
  Company Number: BD-002147023-NVSC2021BD261525

PATIENT
  Age: 22 Year
  Sex: Male
  Weight: 60 kg

DRUGS (3)
  1. XOLAIR [Suspect]
     Active Substance: OMALIZUMAB
     Indication: Asthma
     Dosage: 150 MG (2 DOSES IN FIRST MONTH)
     Route: 058
     Dates: start: 2021
  2. XOLAIR [Suspect]
     Active Substance: OMALIZUMAB
     Dosage: 1 DOSE IN SECOND MONTH
     Route: 058
  3. XOLAIR [Suspect]
     Active Substance: OMALIZUMAB
     Dosage: 1 DOSE IN THIRD MONTH
     Route: 058
     Dates: end: 2021

REACTIONS (3)
  - Mental disorder [Recovering/Resolving]
  - Cerebral disorder [Recovering/Resolving]
  - Logorrhoea [Recovering/Resolving]

NARRATIVE: CASE EVENT DATE: 20210101
